FAERS Safety Report 9999269 (Version 1)
Quarter: 2014Q1

REPORT INFORMATION
  Report Type: Spontaneous
  Country: JP (occurrence: JP)
  Receive Date: 20140312
  Receipt Date: 20140312
  Transmission Date: 20141002
  Serious: Yes (Other)
  Sender: FDA-Public Use
  Company Number: JP-ASTELLAS-2014JP002082

PATIENT
  Age: 5 Year
  Sex: Male

DRUGS (15)
  1. PROGRAF [Suspect]
     Indication: PROPHYLAXIS AGAINST GRAFT VERSUS HOST DISEASE
     Dosage: 0.02 MG/KG, CONTINUOUS
     Route: 041
  2. PROGRAF [Suspect]
     Dosage: 0.03 MG/KG, CONTINUOUS
     Route: 041
  3. PROGRAF [Suspect]
     Indication: PROPHYLAXIS AGAINST GRAFT VERSUS HOST DISEASE
     Dosage: UNK
     Route: 048
  4. FLUDARABINE [Concomitant]
     Indication: PREMEDICATION
     Dosage: UNK
     Route: 065
  5. CYTARABINE [Concomitant]
     Indication: PREMEDICATION
     Route: 065
  6. MELPHALAN [Concomitant]
     Indication: PREMEDICATION
     Dosage: UNK
     Route: 065
  7. METHOTREXATE [Concomitant]
     Indication: PROPHYLAXIS AGAINST GRAFT VERSUS HOST DISEASE
     Dosage: 15 MG/M2, UNKNOWN/D
     Route: 065
  8. METHOTREXATE [Concomitant]
     Dosage: 10 MG/M2, UNKNOWN/D
     Route: 065
  9. GRANULOCYTE COLONY-STIMULATING FACTOR NOS [Concomitant]
     Dosage: 5 UG/KG, UNKNOWN/D
     Route: 065
  10. SULFAMETHOXAZOLE W/TRIMETHOPRIM [Concomitant]
     Indication: INFECTION PROPHYLAXIS
     Route: 048
  11. POLYMYXIN B [Concomitant]
     Indication: INFECTION PROPHYLAXIS
     Route: 065
  12. AMPHOTERICIN B [Concomitant]
     Indication: INFECTION PROPHYLAXIS
     Route: 065
  13. HEPARIN [Concomitant]
     Indication: PROPHYLAXIS
     Route: 065
  14. URSODEOXYCHOLIC ACID [Concomitant]
     Indication: PROPHYLAXIS
     Route: 065
  15. EICOSAPENTAENOIC ACID ETHYL ESTER [Concomitant]
     Indication: PROPHYLAXIS
     Route: 065

REACTIONS (2)
  - Drug ineffective [Unknown]
  - Acute graft versus host disease [Unknown]
